FAERS Safety Report 17143332 (Version 1)
Quarter: 2019Q4

REPORT INFORMATION
  Report Type: Spontaneous
  Country: US (occurrence: US)
  Receive Date: 20191211
  Receipt Date: 20191211
  Transmission Date: 20200122
  Serious: No
  Sender: FDA-Public Use
  Company Number: US-AMERICAN REGENT INC-2019001796

PATIENT
  Age: 49 Year
  Sex: Female

DRUGS (3)
  1. VENOFER [Suspect]
     Active Substance: IRON SUCROSE
     Dosage: 200 MILLIGRAM IN 100 CC NS, SINGLE
     Route: 042
     Dates: start: 20190814, end: 20190814
  2. VENOFER [Suspect]
     Active Substance: IRON SUCROSE
     Indication: IRON DEFICIENCY ANAEMIA
     Dosage: UNK UNK, SINGLE
     Route: 065
     Dates: start: 2018, end: 2018
  3. VENOFER [Suspect]
     Active Substance: IRON SUCROSE
     Dosage: 200 MILLIGRAM IN 100 ML STERILE 0.9% NACL SOLUTION, SINGLE
     Dates: start: 20190819, end: 20190819

REACTIONS (2)
  - Administration site discolouration [Recovering/Resolving]
  - Extravasation [Unknown]

NARRATIVE: CASE EVENT DATE: 20190814
